FAERS Safety Report 5150892-6 (Version None)
Quarter: 2006Q4

REPORT INFORMATION
  Report Type: 
  Country: None (occurrence: None)
  Receive Date: 20061108
  Receipt Date: 20061027
  Transmission Date: 20070319
  Serious: Yes (Other)
  Sender: FDA-Public Use
  Company Number: 2006133550

PATIENT
  Age: 84 Year
  Sex: Female

DRUGS (5)
  1. SULFASALAZINE [Suspect]
     Dosage: ORAL
     Dates: start: 20040101
  2. MERCAPTOPURINE [Concomitant]
  3. RABEPRAZOLE SODIUM [Concomitant]
  4. PREDNONINE (PREDNISOLONE) [Concomitant]
  5. HERBAL PREPARATION (HERBAL PREPARATION) [Concomitant]

REACTIONS (3)
  - ERYTHEMA [None]
  - STOMATITIS [None]
  - WHITE BLOOD CELL COUNT DECREASED [None]
